FAERS Safety Report 6241607-9 (Version None)
Quarter: 2009Q2

REPORT INFORMATION
  Report Type: 
  Country: None (occurrence: None)
  Receive Date: 20090623
  Receipt Date: 20040102
  Transmission Date: 20091009
  Serious: Yes (Hospitalization)
  Sender: FDA-Public Use
  Company Number: TR-ROCHE-444933

PATIENT
  Sex: Male
  Weight: 70 kg

DRUGS (34)
  1. DACLIZUMAB [Suspect]
     Dosage: A ONE OFF DOSE OF 2MG/KG GIVEN 24 HOURS PRE-TRANSPLANT.
     Route: 042
  2. DACLIZUMAB [Suspect]
     Dosage: 1MG/KG GIVEN ONCE EVERY 2 WEEKS FOR FOUR DOSES.
     Route: 042
  3. MYCOPHENOLATE MOFETIL [Suspect]
     Route: 048
     Dates: start: 20040108
  4. MYCOPHENOLATE MOFETIL [Suspect]
     Route: 048
     Dates: start: 20040816
  5. CYCLOSPORINE [Suspect]
     Dosage: DRUG: CYCLOSPORINE
     Route: 048
     Dates: start: 20030922, end: 20030925
  6. CYCLOSPORINE [Suspect]
     Route: 048
     Dates: start: 20031027
  7. CYCLOSPORINE [Suspect]
     Route: 048
     Dates: start: 20040108, end: 20040321
  8. DILTIAZEM [Concomitant]
     Route: 048
     Dates: start: 20030924
  9. ACYCLOVIR [Concomitant]
     Route: 048
     Dates: start: 20031027, end: 20031103
  10. CYCLOSPORINE [Suspect]
     Dosage: DRUG: CYCLOSPORINE
     Route: 048
     Dates: start: 20030926, end: 20031026
  11. CYCLOSPORINE [Suspect]
     Route: 048
     Dates: start: 20040322
  12. CYCLOSPORINE [Suspect]
     Route: 048
     Dates: start: 20040816
  13. GANCICLOVIR [Concomitant]
     Dosage: DRUG: GANCYCLOVIR, DOSE FORM: VIAL
     Route: 042
     Dates: start: 20031209, end: 20031211
  14. LISINOPRIL [Concomitant]
     Route: 048
     Dates: start: 20030927
  15. MYCOPHENOLATE MOFETIL [Suspect]
     Route: 048
     Dates: start: 20030921
  16. MYCOPHENOLATE MOFETIL [Suspect]
     Route: 048
     Dates: start: 20030922
  17. MYCOPHENOLATE MOFETIL [Suspect]
     Route: 048
     Dates: start: 20031114, end: 20031119
  18. MYCOPHENOLATE MOFETIL [Suspect]
     Route: 048
     Dates: start: 20031121
  19. MYCOPHENOLATE MOFETIL [Suspect]
     Route: 048
     Dates: start: 20031122, end: 20040107
  20. OFLOXACIN [Concomitant]
     Dosage: DOSE FORM: VIAL
     Route: 042
     Dates: start: 20030922, end: 20031003
  21. PREDNISOLONE [Suspect]
     Route: 048
     Dates: start: 20040108, end: 20040816
  22. PREDNISOLONE [Suspect]
     Route: 048
     Dates: start: 20050519
  23. SIMVASTATIN [Concomitant]
     Route: 048
     Dates: start: 20030722, end: 20051110
  24. TACROLIMUS [Suspect]
     Route: 048
     Dates: start: 20050516
  25. SULFAMETHOXAZOLE AND TRIMETHOPRIM [Concomitant]
     Route: 048
     Dates: start: 20031003, end: 20040614
  26. METHYLPREDNISOLONE [Suspect]
     Route: 042
     Dates: start: 20030922
  27. METHYLPREDNISOLONE [Suspect]
     Dosage: ROUTE: ORAL
     Route: 042
     Dates: start: 20030927
  28. METHYLPREDNISOLONE [Suspect]
     Route: 042
     Dates: start: 20030929, end: 20031002
  29. METHYLPREDNISOLONE [Suspect]
     Dosage: DOSE FORM: VIAL
     Route: 042
     Dates: start: 20031015, end: 20031016
  30. METHYLPREDNISOLONE [Suspect]
     Route: 042
     Dates: start: 20031110, end: 20031113
  31. METHYLPREDNISOLONE [Suspect]
     Dosage: DOSE FORM: VIAL
     Route: 042
     Dates: start: 20050516, end: 20050519
  32. METHYLPREDNISOLONE [Suspect]
     Route: 048
     Dates: start: 20031003, end: 20031014
  33. METHYLPREDNISOLONE [Suspect]
     Route: 048
     Dates: start: 20031017, end: 20031109
  34. METHYLPREDNISOLONE [Suspect]
     Route: 048
     Dates: start: 20031114, end: 20040108

REACTIONS (4)
  - ANAEMIA [None]
  - BLOOD CREATININE INCREASED [None]
  - CYTOMEGALOVIRUS INFECTION [None]
  - THROMBOCYTOPENIA [None]
